FAERS Safety Report 8110332-1 (Version None)
Quarter: 2012Q1

REPORT INFORMATION
  Report Type: 
  Country: None (occurrence: None)
  Receive Date: 20120202
  Receipt Date: 20120119
  Transmission Date: 20120608
  Serious: Yes (Hospitalization)
  Sender: FDA-Public Use
  Company Number: GB-ROCHE-1032172

PATIENT
  Age: 14 Year
  Sex: Female

DRUGS (4)
  1. ACETAMINOPHEN [Concomitant]
  2. CEFTRIAXONE [Suspect]
     Indication: ABSCESS
     Route: 042
     Dates: start: 20120112, end: 20120113
  3. IBUPROFEN [Concomitant]
  4. CLINDAMYCIN [Concomitant]

REACTIONS (2)
  - RASH [None]
  - DRUG HYPERSENSITIVITY [None]
